FAERS Safety Report 19725880 (Version 1)
Quarter: 2021Q3

REPORT INFORMATION
  Report Type: Spontaneous
  Country: CN (occurrence: CN)
  Receive Date: 20210820
  Receipt Date: 20210820
  Transmission Date: 20211014
  Serious: Yes (Other)
  Sender: FDA-Public Use
  Company Number: CN-SA-2021SA273749

PATIENT
  Age: 38 Year
  Sex: Female
  Weight: 46.7 kg

DRUGS (7)
  1. SODIUM CHLORIDE. [Concomitant]
     Active Substance: SODIUM CHLORIDE
     Indication: ELECTROLYTE IMBALANCE
     Dosage: 250 ML, QD
     Route: 041
     Dates: start: 20210622, end: 20210622
  2. SODIUM CHLORIDE. [Concomitant]
     Active Substance: SODIUM CHLORIDE
     Indication: BODY TEMPERATURE ABNORMAL
  3. DOXORUBICIN HYDROCHLORIDE LIPOSOME [Suspect]
     Active Substance: DOXORUBICIN HYDROCHLORIDE
     Indication: NEOPLASM MALIGNANT
     Dosage: 40 MG, QD
     Route: 041
     Dates: start: 20210717, end: 20210717
  4. GLUCOSE [Concomitant]
     Active Substance: DEXTROSE
     Indication: BODY TEMPERATURE ABNORMAL
     Dosage: 250 ML, QD
     Route: 041
     Dates: start: 20210622, end: 20210622
  5. DOCETAXEL. [Suspect]
     Active Substance: DOCETAXEL
     Indication: NEOPLASM MALIGNANT
     Dosage: 108 MG, QD
     Route: 041
     Dates: start: 20210717, end: 20210717
  6. CYCLOPHOSPHAMIDE. [Suspect]
     Active Substance: CYCLOPHOSPHAMIDE
     Indication: NEOPLASM MALIGNANT
     Dosage: 0.72 G, QD
     Route: 041
     Dates: start: 20210717, end: 20210717
  7. GLUCOSE [Concomitant]
     Active Substance: DEXTROSE
     Indication: ELECTROLYTE IMBALANCE

REACTIONS (5)
  - Neutrophil count decreased [Recovering/Resolving]
  - Nausea [Recovering/Resolving]
  - White blood cell count decreased [Recovering/Resolving]
  - Haemoglobin decreased [Recovering/Resolving]
  - Vomiting [Recovering/Resolving]

NARRATIVE: CASE EVENT DATE: 20210719
